FAERS Safety Report 10183516 (Version 2)
Quarter: 2014Q3

REPORT INFORMATION
  Report Type: Spontaneous
  Country: SE (occurrence: SE)
  Receive Date: 20140520
  Receipt Date: 20140822
  Transmission Date: 20150326
  Serious: Yes (Disabling)
  Sender: FDA-Public Use
  Company Number: SE-ROCHE-1402996

PATIENT
  Age: 72 Year
  Sex: Female

DRUGS (12)
  1. TROMBYL [Concomitant]
     Active Substance: ASPIRIN
     Route: 065
  2. SIMVASTATIN. [Concomitant]
     Active Substance: SIMVASTATIN
     Route: 065
  3. CEFUROXIME. [Concomitant]
     Active Substance: CEFUROXIME
     Route: 065
  4. AVASTIN [Suspect]
     Active Substance: BEVACIZUMAB
     Route: 065
     Dates: start: 20140409, end: 20140409
  5. ALVEDON [Concomitant]
     Active Substance: ACETAMINOPHEN
     Route: 065
  6. AVASTIN [Suspect]
     Active Substance: BEVACIZUMAB
     Indication: AGE-RELATED MACULAR DEGENERATION
     Route: 065
     Dates: start: 20140312, end: 20140312
  7. SALURES [Concomitant]
     Active Substance: BENDROFLUMETHIAZIDE
     Route: 065
  8. KALEORID [Concomitant]
     Active Substance: POTASSIUM CHLORIDE
     Route: 065
  9. CYCLOGYL [Concomitant]
     Active Substance: CYCLOPENTOLATE HYDROCHLORIDE
     Route: 065
  10. OFTAQUIX [Concomitant]
     Active Substance: LEVOFLOXACIN
     Route: 065
  11. NITROLINGUAL [Concomitant]
     Active Substance: NITROGLYCERIN
     Route: 065
  12. PHENYLEPHRINE [Concomitant]
     Active Substance: PHENYLEPHRINE\PHENYLEPHRINE HYDROCHLORIDE
     Route: 065

REACTIONS (1)
  - Retinal artery occlusion [Unknown]

NARRATIVE: CASE EVENT DATE: 20140417
